FAERS Safety Report 7767066-2 (Version None)
Quarter: 2011Q3

REPORT INFORMATION
  Report Type: 
  Country: None (occurrence: None)
  Receive Date: 20110922
  Receipt Date: 20110303
  Transmission Date: 20111222
  Serious: No
  Sender: FDA-Public Use
  Company Number: US-ASTRAZENECA-2011SE11974

PATIENT
  Age: 54 Year
  Sex: Female

DRUGS (4)
  1. TOPAMAX [Concomitant]
  2. PROTONIX [Concomitant]
  3. SEROQUEL XR [Suspect]
     Indication: DEPRESSION
     Route: 048
     Dates: start: 20090301
  4. PAXIL [Concomitant]

REACTIONS (4)
  - WEIGHT INCREASED [None]
  - IMMUNE SYSTEM DISORDER [None]
  - SINUSITIS [None]
  - BRONCHITIS [None]
